FAERS Safety Report 22803557 (Version 3)
Quarter: 2025Q2

REPORT INFORMATION
  Report Type: Report from Study
  Country: EG (occurrence: EG)
  Receive Date: 20230809
  Receipt Date: 20250627
  Transmission Date: 20250717
  Serious: Yes (Other)
  Sender: NOVARTIS
  Company Number: EG-002147023-NVSC2023EG170446

PATIENT
  Age: 65 Year
  Sex: Male

DRUGS (21)
  1. ENTRESTO [Suspect]
     Active Substance: SACUBITRIL\VALSARTAN
     Indication: Cardiac failure
     Dosage: 50 MG, QD
     Route: 048
     Dates: start: 20220725, end: 20220925
  2. ENTRESTO [Suspect]
     Active Substance: SACUBITRIL\VALSARTAN
     Dosage: 50 MG, QD (FOR 3 MONTHS)
     Route: 048
     Dates: start: 202301, end: 202303
  3. ENTRESTO [Suspect]
     Active Substance: SACUBITRIL\VALSARTAN
     Dosage: 50 MG, BID
     Route: 048
     Dates: start: 202304, end: 202306
  4. ENTRESTO [Suspect]
     Active Substance: SACUBITRIL\VALSARTAN
     Dosage: 100 MG, BID (SERIAL NUMBER: SN10029421034753)
     Route: 048
     Dates: start: 202306
  5. ENTRESTO [Suspect]
     Active Substance: SACUBITRIL\VALSARTAN
     Dosage: 100 MG, BID
     Route: 048
     Dates: end: 202505
  6. ENTRESTO [Suspect]
     Active Substance: SACUBITRIL\VALSARTAN
     Dosage: 50 MG, BID
     Route: 048
     Dates: start: 202505
  7. ATORVASTATIN CALCIUM [Concomitant]
     Active Substance: ATORVASTATIN CALCIUM
     Indication: Blood cholesterol abnormal
     Dosage: 1 DOSAGE FORM, QD, TABLET
     Route: 065
     Dates: start: 202306
  8. ATORVASTATIN CALCIUM [Concomitant]
     Active Substance: ATORVASTATIN CALCIUM
     Dosage: 20 MG, QD (3 YEARS AGO)
     Route: 048
  9. PLAVIX [Concomitant]
     Active Substance: CLOPIDOGREL BISULFATE
     Indication: Anticoagulant therapy
     Dosage: 75 MG, QD (STARTED LONGTIME AGO), 3 YEARS AGO TABLET
     Route: 048
  10. BISOPROLOL FUMARATE [Concomitant]
     Active Substance: BISOPROLOL FUMARATE
     Indication: Heart rate irregular
     Dosage: 0.5 DOSAGE FORM, QD, TABLET
     Route: 065
     Dates: start: 20230620
  11. BISOPROLOL FUMARATE [Concomitant]
     Active Substance: BISOPROLOL FUMARATE
     Indication: Blood pressure abnormal
  12. CINNARIZINE [Concomitant]
     Active Substance: CINNARIZINE
     Indication: Cerebral disorder
     Dosage: 1 DOSAGE FORM, QD TABLET
     Route: 065
     Dates: start: 202303
  13. TRENTAL [Concomitant]
     Active Substance: PENTOXIFYLLINE
     Indication: Cerebral disorder
     Dosage: 1 DOSAGE FORM, QD, TABLET
     Route: 065
     Dates: start: 202303
  14. CEREBROLYSIN [Concomitant]
     Active Substance: CEREBROLYSIN
     Indication: Cerebral disorder
     Route: 065
     Dates: start: 202303
  15. ASPIRIN [Concomitant]
     Active Substance: ASPIRIN
     Indication: Anticoagulant therapy
     Dosage: 1 DOSAGE FORM, QD, TABLET
     Route: 065
     Dates: start: 20220620
  16. ASPIRIN [Concomitant]
     Active Substance: ASPIRIN
     Dosage: 100 MG, QD (3 YEARS AGO)
     Route: 048
  17. Empacoza [Concomitant]
     Indication: Cardiac disorder
     Dosage: 10 MG, QD (3 YEARS AGO)
     Route: 048
  18. VASTAREL [Concomitant]
     Active Substance: TRIMETAZIDINE DIHYDROCHLORIDE
     Indication: Product used for unknown indication
     Route: 048
  19. Stringazole [Concomitant]
     Indication: Abdominal discomfort
     Dosage: UNK, QD
     Route: 048
  20. TORSEMIDE [Concomitant]
     Active Substance: TORSEMIDE
     Indication: Diuretic therapy
     Dosage: 1 DOSAGE FORM, QD, TABLET
     Route: 065
     Dates: start: 20230620
  21. TORSEMIDE [Concomitant]
     Active Substance: TORSEMIDE
     Dosage: 1 DOSAGE FORM, QD
     Route: 065

REACTIONS (10)
  - Ejection fraction decreased [Unknown]
  - Gait disturbance [Recovering/Resolving]
  - Myocardial oedema [Recovered/Resolved]
  - Blood creatinine increased [Recovering/Resolving]
  - Nerve compression [Unknown]
  - Vascular compression [Unknown]
  - Concomitant disease aggravated [Unknown]
  - Prescribed underdose [Unknown]
  - Product use issue [Unknown]
  - Oedema [Unknown]

NARRATIVE: CASE EVENT DATE: 20220701
